FAERS Safety Report 13901441 (Version 2)
Quarter: 2017Q3

REPORT INFORMATION
  Report Type: Spontaneous
  Country: NL (occurrence: NL)
  Receive Date: 20170824
  Receipt Date: 20170831
  Transmission Date: 20171127
  Serious: Yes (Other)
  Sender: FDA-Public Use
  Company Number: NL-VALIDUS PHARMACEUTICALS LLC-NL-2017VAL001250

PATIENT

DRUGS (4)
  1. AUGMENTIN [Suspect]
     Active Substance: AMOXICILLIN\CLAVULANATE POTASSIUM
     Indication: WOUND INFECTION
     Dosage: 500 MG/125 MG, TID
     Route: 048
     Dates: start: 20170811
  2. CALCICHEW [Suspect]
     Active Substance: CALCIUM CARBONATE
     Indication: HYPOCALCAEMIA
     Dosage: 1.25 G, BID (500MG CA) 2 TIMES PER DAY 2 TABLETS
     Route: 048
  3. ROCALTROL [Suspect]
     Active Substance: CALCITRIOL
     Indication: PRIMARY HYPOPARATHYROIDISM
     Dosage: 0.75 ?G, BID
     Route: 048
     Dates: start: 2014
  4. ALFACALCIDOL [Concomitant]
     Active Substance: ALFACALCIDOL
     Indication: PRIMARY HYPOPARATHYROIDISM
     Dosage: UNK
     Dates: start: 2014

REACTIONS (3)
  - Chest pain [Unknown]
  - Hypocalcaemia [Recovered/Resolved]
  - Wound infection [Unknown]

NARRATIVE: CASE EVENT DATE: 201708
